FAERS Safety Report 5897158-4 (Version None)
Quarter: 2008Q3

REPORT INFORMATION
  Report Type: 
  Country: None (occurrence: None)
  Receive Date: 20080923
  Receipt Date: 20080911
  Transmission Date: 20090109
  Serious: Yes (Hospitalization, Other)
  Sender: FDA-Public Use
  Company Number: 52365

PATIENT
  Age: 38 Year
  Sex: Female

DRUGS (1)
  1. PROPOFOL [Suspect]
     Indication: SEDATION
     Dosage: 200MG

REACTIONS (2)
  - DEAFNESS NEUROSENSORY [None]
  - DEAFNESS UNILATERAL [None]
